FAERS Safety Report 9835603 (Version 5)
Quarter: 2014Q2

REPORT INFORMATION
  Report Type: Spontaneous
  Country: DE (occurrence: DE)
  Receive Date: 20140122
  Receipt Date: 20140530
  Transmission Date: 20141212
  Serious: Yes (Hospitalization, Other)
  Sender: FDA-Public Use
  Company Number: PHHY2014DE006161

PATIENT
  Age: 64 Year
  Sex: Male

DRUGS (5)
  1. ASS [Concomitant]
     Indication: CEREBROVASCULAR ACCIDENT
     Dosage: 100 MG, UNK
     Route: 048
  2. TASIGNA [Suspect]
     Indication: CHRONIC MYELOID LEUKAEMIA
     Dosage: 400 MG, BID
     Route: 048
     Dates: start: 200801, end: 201309
  3. TASIGNA [Suspect]
     Indication: LEUKAEMIA RECURRENT
     Dosage: 400 MG, BID
     Route: 048
     Dates: start: 20140324, end: 20140407
  4. TASIGNA [Suspect]
     Dosage: 400 MG, UNK
     Route: 048
  5. RAMIPRIL [Concomitant]
     Indication: HYPERTENSION
     Dosage: 2.5 MG, QD
     Route: 048

REACTIONS (9)
  - Cerebral infarction [Recovering/Resolving]
  - Hemiparesis [Recovering/Resolving]
  - Cardiovascular disorder [Recovered/Resolved]
  - Cerebrovascular accident [Recovered/Resolved]
  - Leukaemia recurrent [Unknown]
  - Chronic myeloid leukaemia [Unknown]
  - Hypertension [Recovering/Resolving]
  - Electrocardiogram T wave inversion [Not Recovered/Not Resolved]
  - Asthenia [Recovered/Resolved]
